FAERS Safety Report 14995862 (Version 1)
Quarter: 2018Q2

REPORT INFORMATION
  Report Type: Spontaneous
  Country: GB (occurrence: GB)
  Receive Date: 20180522
  Receipt Date: 20180522
  Transmission Date: 20180711
  Serious: Yes (Disabling)
  Sender: FDA-Public Use
  Company Number: None

PATIENT
  Age: 54 Year
  Sex: Female
  Weight: 57 kg

DRUGS (1)
  1. DERMOVATE [Suspect]
     Active Substance: CLOBETASOL
     Indication: ECZEMA
     Route: 061
     Dates: start: 20000525, end: 20150525

REACTIONS (19)
  - Skin atrophy [None]
  - Peripheral swelling [None]
  - Alopecia [None]
  - Rash generalised [None]
  - Ephelides [None]
  - Steroid withdrawal syndrome [None]
  - Secretion discharge [None]
  - Pain in extremity [None]
  - Immunodeficiency [None]
  - Skin exfoliation [None]
  - Insomnia [None]
  - Application site rash [None]
  - Skin burning sensation [None]
  - Application site atrophy [None]
  - Herpes zoster [None]
  - Weight decreased [None]
  - Anhidrosis [None]
  - Pruritus [None]
  - Skin odour abnormal [None]

NARRATIVE: CASE EVENT DATE: 20000525
